FAERS Safety Report 8025019-3 (Version None)
Quarter: 2012Q1

REPORT INFORMATION
  Report Type: 
  Country: None (occurrence: None)
  Receive Date: 20120105
  Receipt Date: 20120104
  Transmission Date: 20120608
  Serious: Yes (Other)
  Sender: FDA-Public Use
  Company Number: IE-ROCHE-1027187

PATIENT
  Age: 19 Year
  Sex: Male

DRUGS (3)
  1. ISOTRETINOIN [Suspect]
     Route: 048
  2. ERYTHROPED A [Concomitant]
     Indication: ACNE
     Route: 048
     Dates: start: 20110719
  3. ISOTRETINOIN [Suspect]
     Indication: ACNE
     Route: 048
     Dates: start: 20110719

REACTIONS (7)
  - AGGRESSION [None]
  - DECREASED INTEREST [None]
  - SUICIDAL IDEATION [None]
  - MOOD SWINGS [None]
  - SOCIAL AVOIDANT BEHAVIOUR [None]
  - LETHARGY [None]
  - DEPRESSION [None]
